FAERS Safety Report 16857736 (Version 2)
Quarter: 2019Q4

REPORT INFORMATION
  Report Type: Spontaneous
  Country: DK (occurrence: DK)
  Receive Date: 20190926
  Receipt Date: 20191018
  Transmission Date: 20200122
  Serious: Yes (Hospitalization)
  Sender: FDA-Public Use
  Company Number: DK-ASTRAZENECA-2019SF34066

PATIENT
  Age: 23212 Day
  Sex: Male

DRUGS (1)
  1. BYDUREON [Suspect]
     Active Substance: EXENATIDE
     Indication: DIABETES MELLITUS
     Route: 058
     Dates: start: 20190513

REACTIONS (4)
  - Speech disorder [Unknown]
  - Gait disturbance [Unknown]
  - Wrong product administered [Unknown]
  - Confusional state [Unknown]

NARRATIVE: CASE EVENT DATE: 20190531
